FAERS Safety Report 14201255 (Version 1)
Quarter: 2017Q4

REPORT INFORMATION
  Report Type: Spontaneous
  Country: US (occurrence: US)
  Receive Date: 20171117
  Receipt Date: 20171117
  Transmission Date: 20180321
  Serious: No
  Sender: FDA-Public Use
  Company Number: US-PERRIGO-16US022900

PATIENT
  Age: 72 Year
  Sex: Female
  Weight: 56.69 kg

DRUGS (4)
  1. POLYETHYLENE GLYCOL 3350. [Suspect]
     Active Substance: POLYETHYLENE GLYCOL 3350
     Dosage: 17 G, NIGHTLY
     Route: 048
     Dates: start: 20161101, end: 20161214
  2. POLYETHYLENE GLYCOL 3350. [Suspect]
     Active Substance: POLYETHYLENE GLYCOL 3350
     Dosage: 17 G, QOD
     Route: 048
     Dates: start: 20161215, end: 20161217
  3. PRILOSEC [Concomitant]
     Active Substance: OMEPRAZOLE MAGNESIUM
     Indication: GASTROOESOPHAGEAL REFLUX DISEASE
     Dosage: UNK
     Route: 048
     Dates: start: 20061101
  4. POLYETHYLENE GLYCOL 3350. [Suspect]
     Active Substance: POLYETHYLENE GLYCOL 3350
     Indication: CONSTIPATION
     Dosage: 17 G, PRN
     Route: 048
     Dates: start: 20091006, end: 201610

REACTIONS (7)
  - Muscle spasms [Recovered/Resolved]
  - Headache [Recovered/Resolved]
  - Expired product administered [Recovered/Resolved]
  - Burning sensation [Recovered/Resolved]
  - Renal pain [Recovered/Resolved]
  - Feeling abnormal [Recovered/Resolved]
  - Incorrect drug administration duration [Recovered/Resolved]

NARRATIVE: CASE EVENT DATE: 201504
